FAERS Safety Report 17115194 (Version 2)
Quarter: 2019Q4

REPORT INFORMATION
  Report Type: Spontaneous
  Country: US (occurrence: US)
  Receive Date: 20191205
  Receipt Date: 20191213
  Transmission Date: 20200122
  Serious: No
  Sender: FDA-Public Use
  Company Number: US-GW PHARMA-201910USGW3984

PATIENT

DRUGS (2)
  1. EPIDIOLEX [Suspect]
     Active Substance: CANNABIDIOL
     Indication: LENNOX-GASTAUT SYNDROME
     Dosage: 100 MILLIGRAM, BID
     Route: 048
     Dates: start: 20191003, end: 201910
  2. EPIDIOLEX [Suspect]
     Active Substance: CANNABIDIOL
     Dosage: 150 MILLIGRAM, BID
     Route: 048
     Dates: start: 20191010

REACTIONS (7)
  - Insomnia [Unknown]
  - Agitation [Unknown]
  - Musculoskeletal discomfort [Unknown]
  - Tension [Unknown]
  - Flatulence [Unknown]
  - High-pitched crying [Unknown]
  - Irritability [Unknown]

NARRATIVE: CASE EVENT DATE: 201910
